FAERS Safety Report 8150554-7 (Version None)
Quarter: 2012Q1

REPORT INFORMATION
  Report Type: 
  Country: None (occurrence: None)
  Receive Date: 20120220
  Receipt Date: 20120213
  Transmission Date: 20120608
  Serious: Yes (Hospitalization, Other)
  Sender: FDA-Public Use
  Company Number: US-ASTELLAS-2012US000795

PATIENT
  Sex: Male
  Weight: 91 kg

DRUGS (1)
  1. TARCEVA [Suspect]
     Indication: NON-SMALL CELL LUNG CANCER
     Dosage: UNK
     Route: 048
     Dates: end: 20120101

REACTIONS (7)
  - WEIGHT DECREASED [None]
  - OXYGEN SATURATION DECREASED [None]
  - ESCHERICHIA INFECTION [None]
  - TUBERCULOSIS [None]
  - UNEVALUABLE EVENT [None]
  - NEOPLASM PROGRESSION [None]
  - COMA [None]
